FAERS Safety Report 13097178 (Version 1)
Quarter: 2017Q1

REPORT INFORMATION
  Report Type: Report from Study
  Country: BR (occurrence: BR)
  Receive Date: 20170109
  Receipt Date: 20170109
  Transmission Date: 20170428
  Serious: Yes (Hospitalization, Other)
  Sender: FDA-Public Use
  Company Number: BR-ROCHE-1780053

PATIENT
  Sex: Female
  Weight: 73 kg

DRUGS (6)
  1. CORTISONE [Concomitant]
     Active Substance: CORTISONE\HYDROCORTISONE
     Indication: ASTHMA
  2. MABTHERA [Suspect]
     Active Substance: RITUXIMAB
     Indication: RHEUMATOID ARTHRITIS
     Dosage: LAST DOSE: 11/NOV/2015 AND 15/JUL/2016
     Route: 042
     Dates: start: 20150401
  3. DEFLAZACORT [Concomitant]
     Active Substance: DEFLAZACORT
  4. CORTISONE [Concomitant]
     Active Substance: CORTISONE\HYDROCORTISONE
     Indication: ARTHRITIS
  5. MONTELUKAST SODIUM. [Concomitant]
     Active Substance: MONTELUKAST SODIUM
     Indication: ASTHMA
  6. DEPURA [Concomitant]
     Active Substance: CHOLECALCIFEROL

REACTIONS (3)
  - Bronchiolitis [Recovered/Resolved]
  - Immunodeficiency [Recovering/Resolving]
  - Lung infection [Recovering/Resolving]

NARRATIVE: CASE EVENT DATE: 2016
